FAERS Safety Report 12741487 (Version 2)
Quarter: 2016Q4

REPORT INFORMATION
  Report Type: Spontaneous
  Country: JP (occurrence: JP)
  Receive Date: 20160914
  Receipt Date: 20161122
  Transmission Date: 20170207
  Serious: Yes (Other)
  Sender: FDA-Public Use
  Company Number: JP-SA-2016SA167610

PATIENT
  Age: 74 Year
  Sex: Male

DRUGS (1)
  1. BCG FOR IMMUNOTHERAPY [Suspect]
     Active Substance: BACILLUS CALMETTE-GUERIN ANTIGEN, UNSPECIFIED SUBSTRAIN
     Indication: BLADDER CANCER
     Route: 043

REACTIONS (5)
  - Male genital tract tuberculosis [Unknown]
  - Granuloma [Unknown]
  - Skin mass [Unknown]
  - Scrotal infection [Unknown]
  - Tuberculosis [Unknown]
